FAERS Safety Report 11668724 (Version 4)
Quarter: 2016Q2

REPORT INFORMATION
  Report Type: Report from Study
  Country: US (occurrence: US)
  Receive Date: 20151027
  Receipt Date: 20160404
  Transmission Date: 20160815
  Serious: Yes (Hospitalization)
  Sender: FDA-Public Use
  Company Number: US-ACTELION-A-NJ2015-126190

PATIENT
  Age: 73 Year
  Sex: Female

DRUGS (2)
  1. TRACLEER [Suspect]
     Active Substance: BOSENTAN
     Indication: PULMONARY ARTERIAL HYPERTENSION
     Dosage: UNK
     Route: 048
  2. ADCIRCA [Concomitant]
     Active Substance: TADALAFIL

REACTIONS (9)
  - Cholelithiasis [Unknown]
  - Cholelithotomy [Unknown]
  - Chronic kidney disease [Unknown]
  - Intestinal stent insertion [Unknown]
  - Oedema peripheral [Unknown]
  - Endoscopic retrograde cholangiopancreatography [Unknown]
  - Localised oedema [Unknown]
  - Fluid retention [Unknown]
  - Weight decreased [Unknown]
